FAERS Safety Report 4368273-1 (Version None)
Quarter: 2004Q2

REPORT INFORMATION
  Report Type: 
  Country: None (occurrence: None)
  Receive Date: 20040525
  Receipt Date: 20040511
  Transmission Date: 20050107
  Serious: Yes (Hospitalization)
  Sender: FDA-Public Use
  Company Number: HQWYE811311MAY04

PATIENT
  Age: 63 Year
  Sex: Male

DRUGS (11)
  1. PROTONIX [Suspect]
  2. ZOLEDRONATE (ZOLEDRONATE) [Suspect]
     Indication: BONE PAIN
     Dosage: 4 MG 1 X PER 1 DAY, INTRAVENOUS
     Route: 042
  3. ZOLEDRONATE (ZOLEDRONATE) [Suspect]
     Indication: PROSTATE CANCER METASTATIC
     Dosage: 4 MG 1 X PER 1 DAY, INTRAVENOUS
     Route: 042
  4. ESTRAMUSTINE (ESTRAMUSTINE) [Concomitant]
  5. TAXOTERE [Concomitant]
  6. MORPHINE SUL INJ [Concomitant]
  7. HYDROMORPHONE HCL [Concomitant]
  8. CELECOXIB (CELECOXIB) [Concomitant]
  9. ERYHTRHROPOEITIN (ERYTHROPOIETIN) [Concomitant]
  10. METOCLOPRAMIDE [Concomitant]
  11. WARFARIN SODIUM [Concomitant]

REACTIONS (9)
  - BLOOD MAGNESIUM ABNORMAL [None]
  - DYSPHAGIA [None]
  - ELECTROCARDIOGRAM QT PROLONGED [None]
  - HYPERPARATHYROIDISM SECONDARY [None]
  - HYPOCALCAEMIA [None]
  - HYPOPHOSPHATAEMIA [None]
  - LARYNGOSPASM [None]
  - NAUSEA [None]
  - TETANY [None]
